FAERS Safety Report 21306070 (Version 2)
Quarter: 2022Q4

REPORT INFORMATION
  Report Type: Spontaneous
  Country: US (occurrence: US)
  Receive Date: 20220908
  Receipt Date: 20221006
  Transmission Date: 20230113
  Serious: No
  Sender: FDA-Public Use
  Company Number: US-BRISTOL-MYERS SQUIBB COMPANY-2022-102793

PATIENT
  Age: 77 Year
  Sex: Female
  Weight: 78.93 kg

DRUGS (2)
  1. REVLIMID [Suspect]
     Active Substance: LENALIDOMIDE
     Indication: Plasma cell myeloma
     Dosage: 25 MILLIGRAM 3W, 1W OFF
     Route: 048
     Dates: start: 20220201
  2. ELIQUIS [Suspect]
     Active Substance: APIXABAN
     Indication: Thrombosis prophylaxis
     Route: 065

REACTIONS (6)
  - Contusion [Unknown]
  - Balance disorder [Unknown]
  - Malaise [Unknown]
  - Skin fragility [Recovering/Resolving]
  - Increased tendency to bruise [Recovering/Resolving]
  - Fatigue [Unknown]
